FAERS Safety Report 14674922 (Version 1)
Quarter: 2018Q1

REPORT INFORMATION
  Report Type: Spontaneous
  Country: CA (occurrence: CA)
  Receive Date: 20180323
  Receipt Date: 20180323
  Transmission Date: 20180509
  Serious: Yes (Disabling)
  Sender: FDA-Public Use
  Company Number: CA-BAYER-2018-051825

PATIENT
  Age: 38 Year
  Sex: Female
  Weight: 69.39 kg

DRUGS (1)
  1. MIRENA [Suspect]
     Active Substance: LEVONORGESTREL
     Indication: CONTRACEPTION
     Dosage: 20 MCG/24HR, CONT
     Route: 015

REACTIONS (9)
  - Fatigue [Recovering/Resolving]
  - Mental status changes [Recovering/Resolving]
  - Physical disability [Recovering/Resolving]
  - Adjustment disorder [Recovering/Resolving]
  - Hormone level abnormal [Recovering/Resolving]
  - Hypothyroidism [Recovering/Resolving]
  - Impaired work ability [Recovering/Resolving]
  - Irritability [Recovering/Resolving]
  - Emotional disorder [Recovering/Resolving]
